FAERS Safety Report 4621498-X (Version None)
Quarter: 2005Q1

REPORT INFORMATION
  Report Type: 
  Country: None (occurrence: None)
  Receive Date: 20050328
  Receipt Date: 20031028
  Transmission Date: 20050727
  Serious: No
  Sender: FDA-Public Use
  Company Number: 9679

PATIENT

DRUGS (2)
  1. METHOTREXATE [Suspect]
     Indication: CROHN'S DISEASE
     Dosage: 25 MG WEEKLY
     Route: 042
  2. METHOTREXATE [Suspect]
     Dosage: PO
     Route: 048

REACTIONS (2)
  - BLOOD ALKALINE PHOSPHATASE INCREASED [None]
  - GAMMA-GLUTAMYLTRANSFERASE INCREASED [None]
